FAERS Safety Report 7771960-6 (Version None)
Quarter: 2011Q3

REPORT INFORMATION
  Report Type: 
  Country: None (occurrence: None)
  Receive Date: 20110922
  Receipt Date: 20100826
  Transmission Date: 20111222
  Serious: No
  Sender: FDA-Public Use
  Company Number: US-ASTRAZENECA-2007UW21681

PATIENT
  Age: 46 Year
  Sex: Male
  Weight: 108.9 kg

DRUGS (18)
  1. SEROQUEL [Suspect]
     Dosage: 100 MG-300 MG
     Route: 048
     Dates: start: 20010201
  2. SEROQUEL [Suspect]
     Route: 048
     Dates: start: 20020507
  3. SEROQUEL [Suspect]
     Indication: ANXIETY
     Dosage: 100 MG-300 MG
     Route: 048
     Dates: start: 20000101
  4. SEROQUEL [Suspect]
     Route: 048
     Dates: start: 20020420
  5. METFORMIN [Concomitant]
     Dates: start: 20020315
  6. ENALAPRIL MALEATE [Concomitant]
     Dates: start: 20070319
  7. SEROQUEL [Suspect]
     Dosage: 100 MG-300 MG
     Route: 048
     Dates: start: 20010201
  8. FUROSEMIDE [Concomitant]
     Dates: start: 20070418
  9. METHADONE HCL [Concomitant]
     Dates: start: 20020420
  10. SEROQUEL [Suspect]
     Indication: SLEEP DISORDER
     Dosage: 100 MG-300 MG
     Route: 048
     Dates: start: 20000101
  11. TRAZODONE HYDROCHLORIDE [Concomitant]
     Indication: SLEEP DISORDER
     Dates: start: 20020418
  12. SEROQUEL [Suspect]
     Indication: DEPRESSION
     Dosage: 100 MG-300 MG
     Route: 048
     Dates: start: 20000101
  13. SEROQUEL [Suspect]
     Route: 048
     Dates: start: 20020420
  14. SEROQUEL [Suspect]
     Route: 048
     Dates: start: 20020507
  15. SEROQUEL [Suspect]
     Route: 048
     Dates: start: 20020507
  16. PROZAC [Concomitant]
     Dosage: STRENGTH: 20 MG - 40 MG
     Dates: start: 20020418
  17. SEROQUEL [Suspect]
     Dosage: 100 MG-300 MG
     Route: 048
     Dates: start: 20010201
  18. SEROQUEL [Suspect]
     Route: 048
     Dates: start: 20020420

REACTIONS (2)
  - DIABETIC COMPLICATION [None]
  - TYPE 2 DIABETES MELLITUS [None]
